FAERS Safety Report 6041994-0 (Version None)
Quarter: 2009Q1

REPORT INFORMATION
  Report Type: 
  Country: None (occurrence: None)
  Receive Date: 20090116
  Receipt Date: 20090107
  Transmission Date: 20090719
  Serious: Yes (Other)
  Sender: FDA-Public Use
  Company Number: DE-MERCK-0901USA01541

PATIENT
  Age: 53 Year
  Sex: Male

DRUGS (6)
  1. DECADRON [Suspect]
     Indication: MULTIPLE MYELOMA
     Route: 048
     Dates: start: 19960401
  2. VINCRISTINE SULFATE [Concomitant]
     Indication: MULTIPLE MYELOMA
     Route: 065
     Dates: start: 19960401
  3. DOXORUBICIN [Concomitant]
     Indication: MULTIPLE MYELOMA
     Route: 065
     Dates: start: 19960401
  4. CYCLOPHOSPHAMIDE [Concomitant]
     Indication: MULTIPLE MYELOMA
     Route: 065
     Dates: start: 19960401
  5. INTERFERON (UNSPECIFIED) [Concomitant]
     Indication: MULTIPLE MYELOMA
     Route: 065
     Dates: start: 20010401, end: 20011101
  6. BENDAMUSTINE [Concomitant]
     Indication: MULTIPLE MYELOMA
     Route: 065
     Dates: start: 20011201, end: 20020301

REACTIONS (3)
  - HYPOAESTHESIA [None]
  - MONOPARESIS [None]
  - MYELOPATHY [None]
